FAERS Safety Report 8576322-X (Version None)
Quarter: 2012Q3

REPORT INFORMATION
  Report Type: 
  Country: None (occurrence: None)
  Receive Date: 20120807
  Receipt Date: 20120731
  Transmission Date: 20120928
  Serious: Yes (Other)
  Sender: FDA-Public Use
  Company Number: FR-ROCHE-1095710

PATIENT
  Sex: Male

DRUGS (3)
  1. ISOTRETINOIN [Suspect]
     Indication: ACNE
     Route: 048
     Dates: start: 19840901, end: 19860301
  2. ISOTRETINOIN [Suspect]
     Dates: start: 19860530, end: 19860830
  3. ISOTRETINOIN [Suspect]
     Dates: start: 19860320, end: 19860530

REACTIONS (3)
  - ASTHENIA [None]
  - MOOD ALTERED [None]
  - HALLUCINATION [None]
